FAERS Safety Report 4445764-6 (Version None)
Quarter: 2004Q3

REPORT INFORMATION
  Report Type: 
  Country: None (occurrence: None)
  Receive Date: 20040908
  Receipt Date: 20040908
  Transmission Date: 20050211
  Serious: Yes (Hospitalization)
  Sender: FDA-Public Use
  Company Number: None

PATIENT
  Age: 71 Year
  Sex: Male

DRUGS (5)
  1. FELODIPINE [Suspect]
     Indication: HYPERTENSION
     Dosage: 5 MG QD
     Dates: start: 20030122
  2. LABETALOL HCL [Suspect]
     Indication: HYPERTENSION
     Dosage: 200 MG BID
     Dates: start: 20010330
  3. FOSINOPRIL SODIUM [Concomitant]
  4. WARFARIN SODIUM [Concomitant]
  5. DIGOXIN [Concomitant]

REACTIONS (1)
  - BRADYCARDIA [None]
